FAERS Safety Report 26025871 (Version 2)
Quarter: 2025Q4

REPORT INFORMATION
  Report Type: Spontaneous
  Country: US (occurrence: US)
  Receive Date: 20251111
  Receipt Date: 20251117
  Transmission Date: 20260118
  Serious: Yes (Life-Threatening, Hospitalization, Other)
  Sender: CIPLA
  Company Number: US-CIPLA LTD.-2025US13848

PATIENT

DRUGS (13)
  1. METOPROLOL [Suspect]
     Active Substance: METOPROLOL
     Dosage: UNK, EMPTY PRESCRIPTION BOTTLES
     Route: 065
  2. PREGABALIN [Suspect]
     Active Substance: PREGABALIN
     Dosage: UNK, EMPTY PRESCRIPTION BOTTLES
     Route: 065
  3. LISINOPRIL [Suspect]
     Active Substance: LISINOPRIL
     Dosage: UNK, EMPTY PRESCRIPTION BOTTLES
     Route: 065
  4. VENLAFAXINE [Suspect]
     Active Substance: VENLAFAXINE HYDROCHLORIDE
     Dosage: UNK, EMPTY PRESCRIPTION BOTTLES
     Route: 065
  5. OMEPRAZOLE [Suspect]
     Active Substance: OMEPRAZOLE
     Dosage: UNK, EMPTY PRESCRIPTION BOTTLES
     Route: 065
  6. CLONAZEPAM [Suspect]
     Active Substance: CLONAZEPAM
     Dosage: UNK, EMPTY PRESCRIPTION BOTTLES
     Route: 065
  7. ONDANSETRON [Suspect]
     Active Substance: ONDANSETRON
     Dosage: UNK, EMPTY PRESCRIPTION BOTTLES
     Route: 065
  8. TRAZODONE [Suspect]
     Active Substance: TRAZODONE HYDROCHLORIDE
     Dosage: UNK, EMPTY PRESCRIPTION BOTTLES
     Route: 065
  9. ROSUVASTATIN [Suspect]
     Active Substance: ROSUVASTATIN
     Dosage: UNK, EMPTY PRESCRIPTION BOTTLES
     Route: 065
  10. LEVOTHYROXINE [Suspect]
     Active Substance: LEVOTHYROXINE
     Dosage: UNK, EMPTY PRESCRIPTION BOTTLES
     Route: 065
  11. DIPHENHYDRAMINE [Suspect]
     Active Substance: DIPHENHYDRAMINE
     Dosage: UNK, EMPTY PRESCRIPTION BOTTLES
     Route: 065
  12. NICOTINE [Suspect]
     Active Substance: NICOTINE
     Dosage: UNK
     Route: 065
  13. CAFFEINE [Suspect]
     Active Substance: CAFFEINE
     Dosage: UNK
     Route: 065

REACTIONS (12)
  - Ventricular tachycardia [Recovered/Resolved]
  - Cardio-respiratory arrest [Recovered/Resolved]
  - Renal failure [Unknown]
  - Ischaemic hepatitis [Unknown]
  - Pneumonia aspiration [Unknown]
  - Intestinal ischaemia [Unknown]
  - Intentional overdose [Unknown]
  - Electrocardiogram QRS complex prolonged [Recovered/Resolved]
  - Hypothermia [Unknown]
  - Ventricular dysfunction [Recovered/Resolved]
  - Bradycardia [Recovered/Resolved]
  - Hypotension [Unknown]
